FAERS Safety Report 23815808 (Version 3)
Quarter: 2024Q3

REPORT INFORMATION
  Report Type: Report from Study
  Country: NL (occurrence: NL)
  Receive Date: 20240503
  Receipt Date: 20240722
  Transmission Date: 20241016
  Serious: Yes (Other)
  Sender: ABBVIE
  Company Number: NL-ABBVIE-5743147

PATIENT
  Sex: Male

DRUGS (11)
  1. CARBIDOPA\LEVODOPA [Suspect]
     Active Substance: CARBIDOPA\LEVODOPA
     Indication: Parkinson^s disease
     Dosage: MD: 6.2 ML, CD: 4.2 ML/H, ED: 2.0 ML?REMAINS AT 16 HOURS
     Route: 050
     Dates: start: 20240402, end: 20240530
  2. CARBIDOPA\LEVODOPA [Suspect]
     Active Substance: CARBIDOPA\LEVODOPA
     Dosage: MD: 6.2 ML, CD: 4.0 ML/H, ED: 2.0 ML?REMAINS AT 16 HOURS
     Route: 050
     Dates: start: 20231109, end: 20240306
  3. CARBIDOPA\LEVODOPA [Suspect]
     Active Substance: CARBIDOPA\LEVODOPA
     Dosage: MD: 6.0 ML, CD: 4.2 ML/H, ED: 2.0 ML
     Route: 050
     Dates: start: 20240530
  4. CARBIDOPA\LEVODOPA [Suspect]
     Active Substance: CARBIDOPA\LEVODOPA
     Dosage: MD: 6.2 ML, CD: 4.2 ML/H, ED: 2.0 ML?REMAINS AT 16 HOURS
     Route: 050
     Dates: start: 20240306, end: 20240402
  5. CARBIDOPA\LEVODOPA [Suspect]
     Active Substance: CARBIDOPA\LEVODOPA
     Route: 050
     Dates: start: 20180228
  6. MOVICOLON [Concomitant]
     Active Substance: POLYETHYLENE GLYCOL 3350\POTASSIUM CHLORIDE\SODIUM BICARBONATE\SODIUM CHLORIDE
     Indication: Abnormal faeces
  7. CARBIDOPA AND LEVODOPA [Concomitant]
     Active Substance: CARBIDOPA\LEVODOPA
     Indication: Parkinson^s disease
  8. CLOZAPINE [Concomitant]
     Active Substance: CLOZAPINE
     Indication: Parkinson^s disease
     Route: 048
  9. BENSERAZIDE HYDROCHLORIDE\LEVODOPA [Suspect]
     Active Substance: BENSERAZIDE HYDROCHLORIDE\LEVODOPA
     Indication: Parkinson^s disease
     Route: 065
     Dates: start: 202404
  10. STALEVO [Concomitant]
     Active Substance: CARBIDOPA\ENTACAPONE\LEVODOPA
     Indication: Parkinson^s disease
  11. MEGESTROL ACETATE [Concomitant]
     Active Substance: MEGESTROL ACETATE
     Indication: Product used for unknown indication

REACTIONS (9)
  - Epilepsy [Not Recovered/Not Resolved]
  - Fall [Not Recovered/Not Resolved]
  - Device issue [Not Recovered/Not Resolved]
  - Hypotension [Not Recovered/Not Resolved]
  - Tremor [Not Recovered/Not Resolved]
  - Eye movement disorder [Not Recovered/Not Resolved]
  - Contusion [Not Recovered/Not Resolved]
  - Stoma site discharge [Not Recovered/Not Resolved]
  - Abdominal pain upper [Not Recovered/Not Resolved]

NARRATIVE: CASE EVENT DATE: 20240401
